FAERS Safety Report 9771987 (Version 1)
Quarter: 2013Q4

REPORT INFORMATION
  Report Type: Spontaneous
  Country: US (occurrence: None)
  Receive Date: 20131001
  Receipt Date: 20131001
  Transmission Date: 20140711
  Serious: Yes (Other)
  Sender: FDA-Public Use
  Company Number: ACO_37284_2013

PATIENT
  Age: 65 Year
  Sex: Female
  Weight: 54.4 kg

DRUGS (2)
  1. AMPYRA (DALFAMPRIDINE) TABLET, 10MG [Suspect]
     Indication: MULTIPLE SCLEROSIS
     Route: 048
     Dates: start: 201305, end: 201306
  2. VITAMINS NOS [Concomitant]

REACTIONS (2)
  - Convulsion [None]
  - Tremor [None]
